FAERS Safety Report 14985338 (Version 2)
Quarter: 2018Q2

REPORT INFORMATION
  Report Type: Report from Study
  Country: None (occurrence: US)
  Receive Date: 20180607
  Receipt Date: 20180608
  Transmission Date: 20180711
  Serious: Yes (Death)
  Sender: FDA-Public Use
  Company Number: US-ABBVIE-18K-163-2379496-00

PATIENT
  Age: 88 Year
  Sex: Male

DRUGS (2)
  1. VENCLEXTA [Suspect]
     Active Substance: VENETOCLAX
     Indication: B-CELL SMALL LYMPHOCYTIC LYMPHOMA
     Dosage: 20 MG FOR 7 DAYS. ?UNKNOWN IF PATIENT TOOK VENCLEXTA FOR 7 DAYS
     Route: 048
  2. VENCLEXTA [Suspect]
     Active Substance: VENETOCLAX
     Indication: ACUTE MYELOID LEUKAEMIA

REACTIONS (2)
  - Off label use [Not Recovered/Not Resolved]
  - Death [Fatal]

NARRATIVE: CASE EVENT DATE: 20180528
